FAERS Safety Report 11451042 (Version 1)
Quarter: 2015Q3

REPORT INFORMATION
  Report Type: Spontaneous
  Country: US (occurrence: US)
  Receive Date: 20150903
  Receipt Date: 20150903
  Transmission Date: 20151125
  Serious: No
  Sender: FDA-Public Use
  Company Number: US-ROCHE-1074351

PATIENT
  Sex: Female

DRUGS (1)
  1. PEGASYS [Suspect]
     Active Substance: PEGINTERFERON ALFA-2A
     Indication: PRODUCT USED FOR UNKNOWN INDICATION
     Route: 065

REACTIONS (15)
  - Pyrexia [Unknown]
  - Myalgia [Unknown]
  - Tremor [Unknown]
  - Dysgeusia [Unknown]
  - Nausea [Unknown]
  - Abdominal distension [Unknown]
  - Pain [Unknown]
  - Fatigue [Unknown]
  - Heart rate increased [Unknown]
  - Chills [Unknown]
  - Pruritus [Unknown]
  - Musculoskeletal stiffness [Unknown]
  - Anorectal discomfort [Unknown]
  - Insomnia [Unknown]
  - Dyspnoea [Unknown]
